FAERS Safety Report 5830544-7 (Version None)
Quarter: 2008Q3

REPORT INFORMATION
  Report Type: 
  Country: None (occurrence: None)
  Receive Date: 20080801
  Receipt Date: 20070709
  Transmission Date: 20090109
  Serious: No
  Sender: FDA-Public Use
  Company Number: US-BRISTOL-MYERS SQUIBB COMPANY-13840996

PATIENT
  Age: 81 Year
  Sex: Female

DRUGS (2)
  1. COUMADIN [Suspect]
     Indication: CARDIOVASCULAR DISORDER
  2. COREG [Concomitant]

REACTIONS (1)
  - RASH PRURITIC [None]
